FAERS Safety Report 7895505-5 (Version None)
Quarter: 2011Q4

REPORT INFORMATION
  Report Type: 
  Country: None (occurrence: None)
  Receive Date: 20111106
  Receipt Date: 20110829
  Transmission Date: 20120403
  Serious: No
  Sender: FDA-Public Use
  Company Number: US-AMGEN-USASP2011044091

PATIENT
  Age: 43 Year
  Sex: Female
  Weight: 96.599 kg

DRUGS (12)
  1. LORAZEPAM [Concomitant]
     Dosage: 0.5 MG, UNK
  2. OXYCODONE/ACETAMINOPHEN [Concomitant]
     Dosage: UNK MG, UNK
  3. CLOBETASOL 0.05% [Concomitant]
     Dosage: UNK
  4. VENTOLIN HFA [Concomitant]
     Dosage: UNK
  5. PROMETHAZINE [Concomitant]
     Dosage: 25 MG, UNK
  6. ENBREL [Suspect]
     Indication: PRODUCT USED FOR UNKNOWN INDICATION
     Dosage: 25 MG, 2 TIMES/WK
  7. BENADRYL ALLERGY                   /00000402/ [Concomitant]
     Dosage: 25 MG, UNK
  8. SYNTHROID [Concomitant]
     Dosage: 112 MUG, UNK
  9. PROTONIX [Concomitant]
     Dosage: 20 MG, UNK
  10. SYMBICORT [Concomitant]
     Dosage: UNK
  11. ERYTHROCIN                         /00020901/ [Concomitant]
     Dosage: 250 MG, UNK
  12. LEXAPRO [Concomitant]
     Dosage: 10 MG, UNK

REACTIONS (1)
  - RASH [None]
